FAERS Safety Report 16846053 (Version 1)
Quarter: 2019Q3

REPORT INFORMATION
  Report Type: Spontaneous
  Country: FR (occurrence: FR)
  Receive Date: 20190924
  Receipt Date: 20190924
  Transmission Date: 20191005
  Serious: Yes (Life-Threatening, Hospitalization, Other)
  Sender: FDA-Public Use
  Company Number: FR-009507513-1909FRA005232

PATIENT
  Age: 76 Year
  Sex: Female

DRUGS (15)
  1. TAZOCILLINE [Suspect]
     Active Substance: PIPERACILLIN SODIUM\TAZOBACTAM SODIUM
     Indication: POSTOPERATIVE WOUND COMPLICATION
  2. INEXIUM (ESOMEPRAZOLE MAGNESIUM) [Suspect]
     Active Substance: ESOMEPRAZOLE MAGNESIUM
     Indication: HIATUS HERNIA
     Dosage: UNK
     Route: 048
     Dates: start: 20140608, end: 20140731
  3. CIFLOX (CIPROFLOXACIN) [Concomitant]
     Active Substance: CIPROFLOXACIN
     Indication: POSTOPERATIVE WOUND COMPLICATION
     Dosage: UNK
     Route: 065
     Dates: start: 20140704, end: 20140711
  4. SIMVASTATIN. [Suspect]
     Active Substance: SIMVASTATIN
     Indication: PRODUCT USED FOR UNKNOWN INDICATION
     Dosage: UNK
     Route: 048
     Dates: start: 20140608, end: 20140731
  5. KEPPRA [Suspect]
     Active Substance: LEVETIRACETAM
     Indication: SEIZURE PROPHYLAXIS
     Dosage: UNK
     Route: 048
     Dates: start: 20140611, end: 20140731
  6. LOVENOX [Suspect]
     Active Substance: ENOXAPARIN SODIUM
     Indication: PRODUCT USED FOR UNKNOWN INDICATION
     Dosage: UNK
     Route: 058
     Dates: start: 20140608, end: 20140731
  7. RIFADIN [Suspect]
     Active Substance: RIFAMPIN
     Indication: POST PROCEDURAL COMPLICATION
     Dosage: 1200 MG QD, (600 MG, TWO TIMES A DAY)
     Route: 065
     Dates: start: 20140717, end: 20140730
  8. TAVANIC [Concomitant]
     Active Substance: LEVOFLOXACIN
     Indication: LUNG DISORDER
     Dosage: UNK, AS NECESSARY
     Route: 065
     Dates: start: 20140713, end: 20140721
  9. TAVANIC [Concomitant]
     Active Substance: LEVOFLOXACIN
     Indication: HIATUS HERNIA
  10. ACETAMINOPHEN. [Concomitant]
     Active Substance: ACETAMINOPHEN
     Indication: PAIN
     Dosage: UNK, AS NECESSARY
     Route: 065
  11. CUBICIN [Concomitant]
     Active Substance: DAPTOMYCIN
     Indication: POSTOPERATIVE WOUND COMPLICATION
     Dosage: UNK
     Route: 042
     Dates: start: 20140704, end: 20140707
  12. VANCOMYCIN [Suspect]
     Active Substance: VANCOMYCIN
     Indication: POSTOPERATIVE WOUND COMPLICATION
     Dosage: 2 GRAM, QD (1 G, TWO TIMES A DAY)
     Route: 041
     Dates: start: 20140711, end: 20140730
  13. VANCOMYCIN [Suspect]
     Active Substance: VANCOMYCIN
     Indication: SCAR
  14. TAZOCILLINE [Suspect]
     Active Substance: PIPERACILLIN SODIUM\TAZOBACTAM SODIUM
     Indication: SCAR
     Dosage: UNK
     Route: 042
     Dates: start: 20140704, end: 20140711
  15. LYRICA [Suspect]
     Active Substance: PREGABALIN
     Indication: PRODUCT USED FOR UNKNOWN INDICATION
     Dosage: 230 MILLIGRAM, QD (115 MG, TWO TIMES A DAY)
     Route: 048
     Dates: start: 20140608, end: 20140731

REACTIONS (11)
  - Eosinophilia [Recovering/Resolving]
  - Face oedema [Recovered/Resolved]
  - Pneumonia [Unknown]
  - Drug reaction with eosinophilia and systemic symptoms [Recovering/Resolving]
  - Lichenoid keratosis [Recovering/Resolving]
  - Rash maculo-papular [Recovering/Resolving]
  - Staphylococcal skin infection [Unknown]
  - Bacillus infection [Unknown]
  - Pyrexia [Recovering/Resolving]
  - Rash [Recovering/Resolving]
  - Oedema [Recovering/Resolving]

NARRATIVE: CASE EVENT DATE: 201406
